FAERS Safety Report 9174374 (Version 2)
Quarter: 2013Q4

REPORT INFORMATION
  Report Type: Spontaneous
  Country: FR (occurrence: None)
  Receive Date: 20130318
  Receipt Date: 20131018
  Transmission Date: 20140711
  Serious: Yes (Other)
  Sender: FDA-Public Use
  Company Number: 1625956

PATIENT
  Age: 49 Year
  Sex: Male

DRUGS (7)
  1. GEMCITABINE HYDROCHLORIDE [Suspect]
     Indication: PRODUCT USED FOR UNKNOWN INDICATION
     Route: 042
     Dates: start: 20130208, end: 20130208
  2. OXALIPLATIN [Suspect]
     Indication: PRODUCT USED FOR UNKNOWN INDICATION
     Route: 042
     Dates: start: 20130208, end: 20130208
  3. ONDANSETRON [Suspect]
     Indication: PRODUCT USED FOR UNKNOWN INDICATION
     Route: 042
     Dates: start: 20130208, end: 20130208
  4. METHYLPREDNISOLONE [Suspect]
     Indication: PRODUCT USED FOR UNKNOWN INDICATION
     Route: 042
     Dates: start: 20120208, end: 20120208
  5. GLUCOSE [Concomitant]
  6. CALCIUM GLUCONATE [Concomitant]
  7. MAGNESIUM SULPHATE /01097001/ [Concomitant]

REACTIONS (7)
  - Dysaesthesia pharynx [None]
  - Laryngeal discomfort [None]
  - Urticaria [None]
  - Infusion related reaction [None]
  - Pruritus [None]
  - Heart rate decreased [None]
  - Blood pressure abnormal [None]
